FAERS Safety Report 8584703-3 (Version None)
Quarter: 2012Q3

REPORT INFORMATION
  Report Type: 
  Country: None (occurrence: None)
  Receive Date: 20120810
  Receipt Date: 20120731
  Transmission Date: 20120928
  Serious: Yes (Hospitalization)
  Sender: FDA-Public Use
  Company Number: US-BAYER-2012-079000

PATIENT
  Age: 24 Year
  Sex: Female
  Weight: 55.782 kg

DRUGS (12)
  1. POTASSIUM [Concomitant]
  2. OPIUM ALKALOIDS AND DERIVATIVES [Concomitant]
     Dosage: 5 ML EVERY 12 HOURS
     Route: 048
     Dates: start: 20080831
  3. SPECTRACEF [Concomitant]
     Dosage: 200 MG, BID
     Route: 048
     Dates: start: 20080830, end: 20080831
  4. ACE INHIBITOR NOS [Concomitant]
  5. LEVAQUIN [Concomitant]
     Dosage: 750 MG, DAILY
     Route: 048
     Dates: start: 20080831
  6. GARDASIL [Concomitant]
     Dosage: UNK
     Dates: start: 20080808
  7. YAZ [Suspect]
  8. YASMIN [Suspect]
  9. ADDERALL 5 [Concomitant]
     Dosage: 1 DAILY
     Dates: start: 20080831
  10. LASIX [Concomitant]
     Dosage: 20 MG, QD
  11. DIGOXIN [Concomitant]
  12. COREG [Concomitant]

REACTIONS (4)
  - CEREBROVASCULAR ACCIDENT [None]
  - RENAL INFARCT [None]
  - PERIPHERAL EMBOLISM [None]
  - INTRACARDIAC THROMBUS [None]
